FAERS Safety Report 5605003-7 (Version None)
Quarter: 2008Q1

REPORT INFORMATION
  Report Type: 
  Country: None (occurrence: None)
  Receive Date: 20080128
  Receipt Date: 20080116
  Transmission Date: 20080703
  Serious: Yes (Hospitalization, Other)
  Sender: FDA-Public Use
  Company Number: AT-GILEAD-2008-0014980

PATIENT
  Sex: Male

DRUGS (8)
  1. TRUVADA [Suspect]
     Indication: HIV INFECTION
     Route: 048
     Dates: start: 20071117, end: 20071213
  2. TRUVADA [Suspect]
     Indication: HEPATITIS B VIRUS
  3. COTRIMOXAZOLE [Suspect]
     Indication: ANTIFUNGAL PROPHYLAXIS
     Route: 048
     Dates: start: 20071101
  4. ETHAMBUTOL HYDROCHLORIDE [Suspect]
     Indication: TUBERCULOSIS
     Dates: start: 20071127, end: 20071214
  5. ISONIAZID [Suspect]
     Indication: TUBERCULOSIS
     Dates: start: 20071127, end: 20071214
  6. RIFABUTIN [Suspect]
     Indication: TUBERCULOSIS
     Dates: start: 20071127, end: 20071214
  7. PYRAZINAMIDE [Suspect]
     Indication: TUBERCULOSIS
     Dates: start: 20071127, end: 20071214
  8. KALETRA [Concomitant]
     Indication: HIV INFECTION
     Route: 048
     Dates: start: 20071117

REACTIONS (2)
  - RENAL FAILURE ACUTE [None]
  - WEIGHT DECREASED [None]
